FAERS Safety Report 8494477-2 (Version None)
Quarter: 2012Q2

REPORT INFORMATION
  Report Type: 
  Country: None (occurrence: None)
  Receive Date: 20120627
  Receipt Date: 20120615
  Transmission Date: 20120825
  Serious: Yes (Life-Threatening, Hospitalization)
  Sender: FDA-Public Use
  Company Number: MPS1-1000691

PATIENT
  Age: 5 Year
  Sex: Male
  Weight: 20.6 kg

DRUGS (13)
  1. ALDURAZYME [Suspect]
     Indication: MUCOPOLYSACCHARIDOSIS
     Dosage: 0.81 MG/KG, QW, INTRAVENOUS
     Route: 042
     Dates: start: 20090201
  2. SINGULAIR [Concomitant]
  3. SERETIDE (FLUTICASONE PROPIONATE) [Concomitant]
  4. AEROLIN (SALBUTAMOL SULFATE) [Concomitant]
  5. MOTILIUM [Concomitant]
  6. ACETAMINOPHEN [Concomitant]
  7. BRONCHIODILATORS NOS [Concomitant]
  8. CORTICOSTEROID NOS (CORTICOSTEROID NOS) [Concomitant]
  9. HYDROXYZINE [Concomitant]
  10. SPIRONOLACTONE [Concomitant]
  11. FUROSEMIDE (FUROSEMIDE) [Concomitant]
  12. PURAN T4 (LEVOTHYROXINE SODIUM) [Concomitant]
  13. PREDNISONE TAB [Concomitant]

REACTIONS (5)
  - HYPERHIDROSIS [None]
  - DYSPNOEA [None]
  - CYANOSIS [None]
  - PALLOR [None]
  - ASTHMA [None]
